FAERS Safety Report 17022172 (Version 1)
Quarter: 2019Q4

REPORT INFORMATION
  Report Type: Spontaneous
  Country: US (occurrence: US)
  Receive Date: 20191008
  Receipt Date: 20191008
  Transmission Date: 20200122
  Serious: No
  Sender: FDA-Public Use
  Company Number: None

PATIENT
  Age: 52 Year
  Sex: Female

DRUGS (1)
  1. COSENTYX [Suspect]
     Active Substance: SECUKINUMAB
     Route: 058
     Dates: start: 201908

REACTIONS (4)
  - Treatment noncompliance [None]
  - Myalgia [None]
  - Product dose omission [None]
  - Muscle spasms [None]

NARRATIVE: CASE EVENT DATE: 20190907
